FAERS Safety Report 9092697 (Version 1)
Quarter: 2013Q1

REPORT INFORMATION
  Report Type: Spontaneous
  Country: US (occurrence: US)
  Receive Date: 20130218
  Receipt Date: 20130218
  Transmission Date: 20140127
  Serious: No
  Sender: FDA-Public Use
  Company Number: US-ABBOTT-12P-163-1014241-00

PATIENT
  Age: 65 Year
  Sex: Male
  Weight: 74.91 kg

DRUGS (6)
  1. SIMCOR 500/20 [Suspect]
     Indication: BLOOD TRIGLYCERIDES INCREASED
     Dosage: 500MG/20MG
     Route: 048
     Dates: start: 201208
  2. SIMCOR 500/20 [Suspect]
     Indication: BLOOD CHOLESTEROL INCREASED
  3. LASARTAN [Concomitant]
     Indication: HYPERTENSION
  4. NEXIUM [Concomitant]
     Indication: GASTROOESOPHAGEAL REFLUX DISEASE
  5. LOVAZA [Concomitant]
     Indication: BLOOD TRIGLYCERIDES INCREASED
  6. ZANTAC [Concomitant]
     Indication: GASTROOESOPHAGEAL REFLUX DISEASE

REACTIONS (2)
  - Flushing [Recovered/Resolved]
  - Skin burning sensation [Recovered/Resolved]
